FAERS Safety Report 6062538-3 (Version None)
Quarter: 2009Q1

REPORT INFORMATION
  Report Type: 
  Country: None (occurrence: None)
  Receive Date: 20090202
  Receipt Date: 20090202
  Transmission Date: 20090719
  Serious: Yes (Other)
  Sender: FDA-Public Use
  Company Number: None

PATIENT
  Age: 73 Year
  Sex: Female
  Weight: 54.4316 kg

DRUGS (3)
  1. ALBUTEROL [Suspect]
     Indication: ASTHMA
     Dosage: 2 PUFFS EVERY 4 HOURS
     Dates: start: 20090101, end: 20090128
  2. ALBUTEROL [Suspect]
     Indication: CHRONIC OBSTRUCTIVE PULMONARY DISEASE
     Dosage: 2 PUFFS EVERY 4 HOURS
     Dates: start: 20090101, end: 20090128
  3. ALBUTEROL [Suspect]
     Indication: EMPHYSEMA
     Dosage: 2 PUFFS EVERY 4 HOURS
     Dates: start: 20090101, end: 20090128

REACTIONS (3)
  - MUSCULOSKELETAL CHEST PAIN [None]
  - OESOPHAGEAL PAIN [None]
  - PRODUCT QUALITY ISSUE [None]
